FAERS Safety Report 17708330 (Version 1)
Quarter: 2020Q2

REPORT INFORMATION
  Report Type: Spontaneous
  Country: FR (occurrence: FR)
  Receive Date: 20200426
  Receipt Date: 20200426
  Transmission Date: 20200714
  Serious: Yes (Hospitalization)
  Sender: FDA-Public Use
  Company Number: NVSC2020FR109408

PATIENT
  Age: 17 Year
  Sex: Female

DRUGS (3)
  1. SERESTA [Suspect]
     Active Substance: OXAZEPAM
     Indication: INTENTIONAL OVERDOSE
     Dosage: 40 MG, TOTAL
     Route: 048
     Dates: start: 20191225, end: 20191225
  2. PARACETAMOL [Suspect]
     Active Substance: ACETAMINOPHEN
     Indication: INTENTIONAL OVERDOSE
     Dosage: 8 G, TOTAL
     Route: 048
     Dates: start: 20191225, end: 20191225
  3. MUCOMYST [Concomitant]
     Active Substance: ACETYLCYSTEINE
     Indication: INTENTIONAL OVERDOSE
     Dosage: 200 MG, TOTAL
     Route: 048
     Dates: start: 20191225

REACTIONS (2)
  - Poisoning deliberate [Recovered/Resolved]
  - Somnolence [Recovered/Resolved]

NARRATIVE: CASE EVENT DATE: 20191225
